FAERS Safety Report 6558578-8 (Version None)
Quarter: 2010Q1

REPORT INFORMATION
  Report Type: 
  Country: None (occurrence: None)
  Receive Date: 20100128
  Receipt Date: 20100128
  Transmission Date: 20100710
  Serious: No
  Sender: FDA-Public Use
  Company Number: None

PATIENT
  Age: 64 Year
  Sex: Male
  Weight: 69.8539 kg

DRUGS (3)
  1. KAPIDEX [Suspect]
     Indication: DYSPEPSIA
     Dosage: DAILY 1 CAPSULE
     Dates: start: 20100112
  2. KAPIDEX [Suspect]
     Indication: GASTROOESOPHAGEAL REFLUX DISEASE
     Dosage: DAILY 1 CAPSULE
     Dates: start: 20100112
  3. KAPIDEX DEXALANSOPROZOLE [Concomitant]

REACTIONS (1)
  - ARTHRITIS [None]
